FAERS Safety Report 9838271 (Version 1)
Quarter: 2014Q1

REPORT INFORMATION
  Report Type: Spontaneous
  Country: GB (occurrence: GB)
  Receive Date: 20140123
  Receipt Date: 20140123
  Transmission Date: 20141002
  Serious: Yes (Life-Threatening, Hospitalization, Other)
  Sender: FDA-Public Use
  Company Number: GB-WATSON-2014-00344

PATIENT
  Age: 14 Year
  Sex: Female
  Weight: 9 kg

DRUGS (7)
  1. CHLORPHENAMINE (UNKNOWN) [Suspect]
     Indication: HYPERSENSITIVITY
     Dosage: 5 ML, TID
     Route: 048
     Dates: start: 20000810
  2. PIRITON [Suspect]
     Indication: URTICARIA
     Dosage: UNK; SYRUP
     Route: 048
     Dates: start: 20000705
  3. FLIXOTIDE [Concomitant]
     Indication: ASTHMA
     Dosage: 100 ?G, BID
     Route: 055
  4. HYDROCORTISONE [Concomitant]
     Indication: ECZEMA
     Dosage: UNK
     Route: 065
  5. SALBUTAMOL [Concomitant]
     Indication: ASTHMA
     Dosage: 200 ?G, PRN; AS REQUIRED
     Route: 055
  6. TIMODINE                           /01524101/ [Concomitant]
     Indication: PRODUCT USED FOR UNKNOWN INDICATION
     Dosage: UNK
     Route: 061
     Dates: start: 20000121
  7. FLUCLOXACILLIN [Concomitant]
     Indication: PRODUCT USED FOR UNKNOWN INDICATION
     Dosage: 500 MG, DAILY
     Route: 048
     Dates: start: 20000710

REACTIONS (16)
  - Anaphylactic shock [Unknown]
  - Abnormal behaviour [Unknown]
  - Anaphylactic reaction [Recovered/Resolved]
  - Hypersensitivity [Unknown]
  - Cyanosis [Unknown]
  - Hypotonia [Unknown]
  - Swelling face [Unknown]
  - Choking [Unknown]
  - Malaise [Unknown]
  - Retching [Unknown]
  - Hypotonia [Unknown]
  - Dyspnoea [Unknown]
  - Vomiting [Unknown]
  - Cough [Unknown]
  - Skin discolouration [Unknown]
  - Social problem [Unknown]
